FAERS Safety Report 16177589 (Version 5)
Quarter: 2025Q3

REPORT INFORMATION
  Report Type: Spontaneous
  Country: EU (occurrence: EU)
  Receive Date: 20190410
  Receipt Date: 20250910
  Transmission Date: 20251020
  Serious: Yes (Hospitalization, Other)
  Sender: AUROBINDO
  Company Number: EU-AUROBINDO-AUR-APL-2019-018760

PATIENT
  Age: 79 Year
  Sex: Female

DRUGS (4)
  1. DICLOFENAC [Interacting]
     Active Substance: DICLOFENAC
     Indication: Osteoarthritis
     Route: 065
  2. LISINOPRIL [Interacting]
     Active Substance: LISINOPRIL
     Indication: Hypertension
     Route: 065
  3. HYDROCHLOROTHIAZIDE [Interacting]
     Active Substance: HYDROCHLOROTHIAZIDE
     Indication: Hypertension
     Route: 065
  4. METOPROLOL [Interacting]
     Active Substance: METOPROLOL
     Indication: Hypertension
     Route: 065

REACTIONS (7)
  - Blood creatinine increased [Unknown]
  - Renal impairment [Unknown]
  - Blood urea increased [Unknown]
  - Blood potassium increased [Unknown]
  - Malaise [Unknown]
  - Fatigue [Unknown]
  - Drug interaction [Unknown]
